FAERS Safety Report 9316815 (Version 1)
Quarter: 2013Q2

REPORT INFORMATION
  Report Type: Spontaneous
  Country: US (occurrence: None)
  Receive Date: 20130528
  Receipt Date: 20130528
  Transmission Date: 20140414
  Serious: Yes (Death, Life-Threatening, Hospitalization)
  Sender: FDA-Public Use
  Company Number: None

PATIENT
  Age: 49 Year
  Sex: Male
  Weight: 66.4 kg

DRUGS (1)
  1. ALIMTA [Suspect]
     Indication: LUNG NEOPLASM MALIGNANT
     Dosage: UNKNOWN Q 3 WEEKS IV } 1 YR; TREATMENT HOLIDAY
     Route: 042

REACTIONS (9)
  - Respiratory distress [None]
  - Metabolic encephalopathy [None]
  - Pleural effusion [None]
  - Renal failure acute [None]
  - Dehydration [None]
  - Hypokalaemia [None]
  - Pancytopenia [None]
  - Candida infection [None]
  - Cellulitis [None]
